FAERS Safety Report 22107132 (Version 2)
Quarter: 2025Q3

REPORT INFORMATION
  Report Type: Spontaneous
  Country: US (occurrence: US)
  Receive Date: 20230317
  Receipt Date: 20250828
  Transmission Date: 20251020
  Serious: No
  Sender: SANOFI AVENTIS
  Company Number: US-SA-SAC20230309000588

PATIENT
  Sex: Female

DRUGS (1)
  1. DUPIXENT [Suspect]
     Active Substance: DUPILUMAB
     Indication: Dermatitis atopic
     Route: 058
     Dates: start: 2021

REACTIONS (5)
  - Injection site nodule [Unknown]
  - Pharyngeal swelling [Unknown]
  - Lacrimation increased [Unknown]
  - Injection site bruising [Unknown]
  - Injection site swelling [Unknown]
